FAERS Safety Report 8760468 (Version 2)
Quarter: 2012Q4

REPORT INFORMATION
  Report Type: 
  Country: IE (occurrence: IE)
  Receive Date: 20120830
  Receipt Date: 20120905
  Transmission Date: 20130627
  Serious: Yes (Hospitalization, Other)
  Sender: FDA-Public Use
  Company Number: PHFR2012IE004701

PATIENT
  Sex: Male

DRUGS (3)
  1. CLOZARIL [Suspect]
     Indication: SCHIZOPHRENIA
     Route: 048
     Dates: start: 20080429
  2. CLOZARIL [Suspect]
     Dosage: 20 tablets of 100mg
     Route: 048
  3. CLOZARIL [Suspect]
     Route: 048
     Dates: start: 20120831

REACTIONS (4)
  - Alcoholism [Unknown]
  - Depressed mood [Unknown]
  - Sedation [Unknown]
  - Overdose [Unknown]
